FAERS Safety Report 11374830 (Version 1)
Quarter: 2015Q3

REPORT INFORMATION
  Report Type: Spontaneous
  Country: US (occurrence: US)
  Receive Date: 20150813
  Receipt Date: 20150813
  Transmission Date: 20151125
  Serious: No
  Sender: FDA-Public Use
  Company Number: US-SUN PHARMACEUTICAL INDUSTRIES LTD-2014SUN02409

PATIENT

DRUGS (4)
  1. SIMVASTATIN. [Concomitant]
     Active Substance: SIMVASTATIN
     Indication: BLOOD CHOLESTEROL
     Dosage: 40 MG, OD
     Route: 048
  2. LISINOPRIL. [Concomitant]
     Active Substance: LISINOPRIL
     Indication: BLOOD PRESSURE MEASUREMENT
     Dosage: 20 MG, OD
     Route: 048
  3. PROTONIX [Concomitant]
     Active Substance: PANTOPRAZOLE SODIUM
     Indication: ABDOMINAL DISCOMFORT
     Dosage: 40 MG, OD
     Route: 048
  4. ALPRAZOLAM TABS C-IV 1MG [Suspect]
     Active Substance: ALPRAZOLAM
     Indication: POST-TRAUMATIC STRESS DISORDER
     Dosage: 1 MG, 1DOSE/6HOUR
     Route: 065
     Dates: start: 2010

REACTIONS (5)
  - Nightmare [Unknown]
  - Drug withdrawal syndrome [Unknown]
  - Drug screen false positive [Not Recovered/Not Resolved]
  - Micturition disorder [Unknown]
  - Product substitution issue [Unknown]

NARRATIVE: CASE EVENT DATE: 201208
